FAERS Safety Report 7648794-6 (Version None)
Quarter: 2011Q3

REPORT INFORMATION
  Report Type: 
  Country: None (occurrence: None)
  Receive Date: 20110801
  Receipt Date: 20110727
  Transmission Date: 20111222
  Serious: Yes (Death)
  Sender: FDA-Public Use
  Company Number: US-AMGEN-USASP2011038332

PATIENT
  Age: 76 Year
  Sex: Male

DRUGS (4)
  1. IVIGLOB-EX [Concomitant]
     Dosage: UNK
  2. NPLATE [Suspect]
     Indication: IDIOPATHIC THROMBOCYTOPENIC PURPURA
     Dates: start: 20110203, end: 20110331
  3. RITUXIMAB [Concomitant]
  4. CORTICOSTEROIDS [Concomitant]
     Dosage: 1 A?G/KG, UNK

REACTIONS (1)
  - BRONCHOPULMONARY ASPERGILLOSIS [None]
